FAERS Safety Report 5934363-2 (Version None)
Quarter: 2008Q4

REPORT INFORMATION
  Report Type: 
  Country: None (occurrence: None)
  Receive Date: 20081029
  Receipt Date: 20081023
  Transmission Date: 20090506
  Serious: Yes (Hospitalization)
  Sender: FDA-Public Use
  Company Number: MX-AVENTIS-200820126GDDC

PATIENT
  Age: 27 Year
  Sex: Female

DRUGS (3)
  1. LANTUS [Suspect]
     Indication: DIABETES MELLITUS
     Route: 058
     Dates: start: 20080627, end: 20080801
  2. FOLIC ACID [Concomitant]
     Route: 048
     Dates: start: 20080201, end: 20080627
  3. IRON SULFATETHIAMIN COMPOUND TAB [Concomitant]
     Route: 048
     Dates: start: 20080201, end: 20080627

REACTIONS (5)
  - ABDOMINAL PAIN [None]
  - DRUG EXPOSURE DURING PREGNANCY [None]
  - INTRA-UTERINE DEATH [None]
  - PREMATURE LABOUR [None]
  - VAGINAL HAEMORRHAGE [None]
